FAERS Safety Report 5490277-6 (Version None)
Quarter: 2007Q4

REPORT INFORMATION
  Report Type: 
  Country: None (occurrence: None)
  Receive Date: 20071015
  Receipt Date: 20070613
  Transmission Date: 20080405
  Serious: No
  Sender: FDA-Public Use
  Company Number: 2007SP002436

PATIENT
  Age: 42 Year
  Sex: Female
  Weight: 63.5036 kg

DRUGS (1)
  1. LUNESTA [Suspect]
     Indication: CIRCADIAN RHYTHM SLEEP DISORDER
     Dosage: 3 MG; PRN; ORAL
     Route: 048
     Dates: start: 20070301

REACTIONS (1)
  - MIDDLE INSOMNIA [None]
